FAERS Safety Report 19916973 (Version 1)
Quarter: 2021Q4

REPORT INFORMATION
  Report Type: Spontaneous
  Country: US (occurrence: US)
  Receive Date: 20211004
  Receipt Date: 20211004
  Transmission Date: 20220303
  Serious: Yes (Hospitalization)
  Sender: FDA-Public Use
  Company Number: None

PATIENT
  Age: 62 Year
  Sex: Male

DRUGS (1)
  1. REPATHA [Suspect]
     Active Substance: EVOLOCUMAB
     Indication: Psoriasis
     Dosage: OTHER FREQUENCY:EVERY 14 DAYS;
     Route: 058
     Dates: start: 20210330

REACTIONS (1)
  - Cardiac failure congestive [None]
